FAERS Safety Report 7539795-7 (Version None)
Quarter: 2011Q2

REPORT INFORMATION
  Report Type: 
  Country: None (occurrence: None)
  Receive Date: 20110610
  Receipt Date: 20110606
  Transmission Date: 20111010
  Serious: Yes (Hospitalization)
  Sender: FDA-Public Use
  Company Number: PHHY2011US49352

PATIENT
  Age: 61 Year
  Sex: Male
  Weight: 69.388 kg

DRUGS (1)
  1. TOBI [Suspect]
     Dosage: 300 MG, BID EVERY OTHER MONTH
     Dates: start: 20101122, end: 20110116

REACTIONS (1)
  - CHRONIC OBSTRUCTIVE PULMONARY DISEASE [None]
